FAERS Safety Report 17551392 (Version 1)
Quarter: 2020Q1

REPORT INFORMATION
  Report Type: Spontaneous
  Country: US (occurrence: US)
  Receive Date: 20200317
  Receipt Date: 20200317
  Transmission Date: 20200409
  Serious: Yes (Life-Threatening)
  Sender: FDA-Public Use
  Company Number: None

PATIENT
  Age: 69 Year
  Sex: Female
  Weight: 97.2 kg

DRUGS (22)
  1. LEVOTHYROXINE. [Suspect]
     Active Substance: LEVOTHYROXINE
     Indication: HYPOTHYROIDISM
     Dosage: ?          QUANTITY:1 TABLET(S);?
     Route: 048
     Dates: start: 20200212, end: 20200223
  2. VERAPAMIL [Concomitant]
     Active Substance: VERAPAMIL HYDROCHLORIDE
  3. S-ADENYL GLUTATHIONE [Concomitant]
  4. MELATONIN [Concomitant]
     Active Substance: MELATONIN
  5. VIT D [Concomitant]
     Active Substance: VITAMIN D NOS
  6. BONE BOOSTER [Concomitant]
  7. CREON [Concomitant]
     Active Substance: PANCRELIPASE AMYLASE\PANCRELIPASE LIPASE\PANCRELIPASE PROTEASE
  8. MUCINEX [Concomitant]
     Active Substance: GUAIFENESIN
  9. LACTASE [Concomitant]
     Active Substance: LACTASE
  10. MAGNESIUM THREONATE [Concomitant]
  11. BENFOTIAMINE [Concomitant]
     Active Substance: BENFOTIAMINE
  12. COQ10 [Concomitant]
     Active Substance: UBIDECARENONE
  13. R-ALPHA LIPOIC ACID [Concomitant]
  14. PYCNOGENOL [Concomitant]
     Active Substance: DIETARY SUPPLEMENT
  15. CLONIDINE. [Concomitant]
     Active Substance: CLONIDINE
  16. NAC [Concomitant]
     Active Substance: ACETYLCYSTEINE
  17. MAGNESIUM CITRATE. [Concomitant]
     Active Substance: MAGNESIUM CITRATE
  18. BENADRYL [Concomitant]
     Active Substance: DIPHENHYDRAMINE HYDROCHLORIDE
  19. TRYPTOPHAN [Concomitant]
     Active Substance: TRYPTOPHAN
  20. NP THYROID [Concomitant]
     Active Substance: LEVOTHYROXINE\LIOTHYRONINE
  21. KRILL OIL [Concomitant]
     Active Substance: DIETARY SUPPLEMENT\KRILL OIL
  22. VITAMIN C [Concomitant]
     Active Substance: ASCORBIC ACID

REACTIONS (16)
  - Headache [None]
  - Polycystic ovaries [None]
  - Blood oestrogen increased [None]
  - Dysuria [None]
  - Skin burning sensation [None]
  - Pain [None]
  - Weight decreased [None]
  - Inflammation [None]
  - Product substitution issue [None]
  - Nausea [None]
  - Blood pressure increased [None]
  - Insomnia [None]
  - Menopausal symptoms [None]
  - Blood thyroid stimulating hormone decreased [None]
  - Flushing [None]
  - Blood testosterone increased [None]

NARRATIVE: CASE EVENT DATE: 20200220
